FAERS Safety Report 9387321 (Version 1)
Quarter: 2013Q3

REPORT INFORMATION
  Report Type: Spontaneous
  Country: US (occurrence: US)
  Receive Date: 20130708
  Receipt Date: 20130708
  Transmission Date: 20140515
  Serious: No
  Sender: FDA-Public Use
  Company Number: US-JNJFOC-20130618518

PATIENT
  Sex: Female
  Weight: 68.04 kg

DRUGS (4)
  1. STELARA [Suspect]
     Indication: PSORIASIS
     Route: 058
     Dates: start: 201303
  2. STELARA [Suspect]
     Indication: PSORIASIS
     Route: 058
     Dates: start: 201304
  3. INVEGA SUSTENNA [Suspect]
     Indication: PRODUCT USED FOR UNKNOWN INDICATION
     Route: 030
  4. INVEGA SUSTENNA [Suspect]
     Indication: PRODUCT USED FOR UNKNOWN INDICATION
     Route: 030

REACTIONS (1)
  - Social avoidant behaviour [Not Recovered/Not Resolved]
